FAERS Safety Report 10656204 (Version 2)
Quarter: 2014Q4

REPORT INFORMATION
  Report Type: Spontaneous
  Country: US (occurrence: US)
  Receive Date: 20141216
  Receipt Date: 20141216
  Transmission Date: 20150529
  Serious: No
  Sender: FDA-Public Use
  Company Number: US-CELGENEUS-163-20785-13093490

PATIENT
  Sex: Male

DRUGS (1)
  1. THALOMID [Suspect]
     Active Substance: THALIDOMIDE
     Indication: PLASMA CELL MYELOMA
     Dosage: 50 MILLIGRAM
     Route: 048
     Dates: start: 201307, end: 2013

REACTIONS (6)
  - Asthenia [Unknown]
  - Peripheral swelling [Unknown]
  - Memory impairment [Unknown]
  - Somnolence [Unknown]
  - Hypoaesthesia [Unknown]
  - Speech disorder [Unknown]

NARRATIVE: CASE EVENT DATE: 2013
